FAERS Safety Report 11400453 (Version 2)
Quarter: 2015Q4

REPORT INFORMATION
  Report Type: Spontaneous
  Country: US (occurrence: US)
  Receive Date: 20150820
  Receipt Date: 20151102
  Transmission Date: 20160304
  Serious: Yes (Other)
  Sender: FDA-Public Use
  Company Number: US-ELI_LILLY_AND_COMPANY-US201508005229

PATIENT
  Age: 65 Year
  Sex: Female

DRUGS (3)
  1. HUMALOG MIX75/25 [Suspect]
     Active Substance: INSULIN LISPRO
     Dosage: UNK
     Route: 065
     Dates: start: 2012
  2. HUMALOG MIX75/25 [Suspect]
     Active Substance: INSULIN LISPRO
     Indication: TYPE 2 DIABETES MELLITUS
     Dosage: UNK
     Route: 065
     Dates: start: 2012
  3. TIMOLOL. [Concomitant]
     Active Substance: TIMOLOL

REACTIONS (3)
  - Eye haemorrhage [Recovering/Resolving]
  - Diabetic retinopathy [Unknown]
  - Cataract [Unknown]

NARRATIVE: CASE EVENT DATE: 201410
